FAERS Safety Report 8071091-4 (Version None)
Quarter: 2012Q1

REPORT INFORMATION
  Report Type: 
  Country: None (occurrence: None)
  Receive Date: 20120125
  Receipt Date: 20120118
  Transmission Date: 20120608
  Serious: Yes (Hospitalization)
  Sender: FDA-Public Use
  Company Number: FR-PFIZER INC-2012013616

PATIENT
  Age: 42 Year
  Sex: Female

DRUGS (8)
  1. SERESTA 50 [Concomitant]
     Indication: ANXIETY
     Dosage: 150 MG DAILY
  2. EFFEXOR XR [Suspect]
     Dosage: 75 MG DAILY
     Route: 048
     Dates: start: 20080101, end: 20111001
  3. BISOPROLOL FUMARATE [Concomitant]
     Indication: ARRHYTHMIA
     Dosage: 1.25 MG DAILY
  4. EFFEXOR XR [Suspect]
     Dosage: 150 MG DAILY
     Route: 048
     Dates: start: 20111001, end: 20111114
  5. EFFEXOR XR [Suspect]
     Dosage: 37.5 MG PER DAY
     Route: 048
     Dates: start: 20111115, end: 20111121
  6. SYMBICORT 200 [Concomitant]
     Indication: ASTHMA
     Dosage: 400 MG DAILY
  7. NEXIUM [Concomitant]
     Indication: GASTRITIS
     Dosage: UNK
  8. AOTAL [Concomitant]
     Indication: ALCOHOL WITHDRAWAL SYNDROME
     Dosage: UNK

REACTIONS (11)
  - DIZZINESS [None]
  - TACHYCARDIA [None]
  - WITHDRAWAL SYNDROME [None]
  - EMOTIONAL DISORDER [None]
  - DIARRHOEA [None]
  - IRRITABILITY [None]
  - AGGRESSION [None]
  - PARAESTHESIA [None]
  - HYPERTENSION [None]
  - HEADACHE [None]
  - CRYING [None]
